FAERS Safety Report 9689636 (Version 1)
Quarter: 2013Q4

REPORT INFORMATION
  Report Type: Spontaneous
  Country: US (occurrence: US)
  Receive Date: 20131115
  Receipt Date: 20131115
  Transmission Date: 20140711
  Serious: No
  Sender: FDA-Public Use
  Company Number: US-BIOGENIDEC-2013BI107764

PATIENT
  Sex: Female

DRUGS (1)
  1. TYSABRI [Suspect]
     Indication: MULTIPLE SCLEROSIS
     Route: 042
     Dates: start: 20131018

REACTIONS (8)
  - Hypoaesthesia [Recovered/Resolved]
  - Urinary incontinence [Recovered/Resolved]
  - Eye pain [Recovered/Resolved]
  - Swelling face [Recovered/Resolved]
  - Ear swelling [Recovered/Resolved]
  - Gait disturbance [Recovered/Resolved]
  - Coordination abnormal [Recovered/Resolved]
  - Paraesthesia [Recovered/Resolved]
